FAERS Safety Report 18214816 (Version 1)
Quarter: 2020Q3

REPORT INFORMATION
  Report Type: Spontaneous
  Country: GB (occurrence: GB)
  Receive Date: 20200831
  Receipt Date: 20200831
  Transmission Date: 20201103
  Serious: Yes (Disabling, Other)
  Sender: FDA-Public Use
  Company Number: GB-PERRIGO-20GB012354

PATIENT
  Age: 32 Year
  Sex: Male
  Weight: 83.46 kg

DRUGS (3)
  1. NORZOL 40MG/ML PL00427/0068 [Suspect]
     Active Substance: METRONIDAZOLE BENZOATE
     Indication: INFECTION PARASITIC
     Route: 048
     Dates: start: 20200804, end: 20200806
  2. SILYBUM MARIANUM [Concomitant]
     Active Substance: DIETARY SUPPLEMENT\HERBALS\MILK THISTLE
  3. CREATINE [Concomitant]
     Active Substance: CREATINE

REACTIONS (17)
  - Abdominal discomfort [Not Recovered/Not Resolved]
  - Hallucination [Not Recovered/Not Resolved]
  - Insomnia [Unknown]
  - Confusional state [Not Recovered/Not Resolved]
  - Feeling drunk [Unknown]
  - Vision blurred [Not Recovered/Not Resolved]
  - Neck pain [Not Recovered/Not Resolved]
  - Dizziness [Not Recovered/Not Resolved]
  - Bone pain [Not Recovered/Not Resolved]
  - Panic attack [Not Recovered/Not Resolved]
  - Vomiting [Not Recovered/Not Resolved]
  - Dehydration [Not Recovered/Not Resolved]
  - Palpitations [Unknown]
  - Decreased appetite [Not Recovered/Not Resolved]
  - Hyperhidrosis [Unknown]
  - Feeling hot [Unknown]
  - Anxiety [Not Recovered/Not Resolved]

NARRATIVE: CASE EVENT DATE: 20200805
